FAERS Safety Report 21165957 (Version 5)
Quarter: 2022Q4

REPORT INFORMATION
  Report Type: Spontaneous
  Country: US (occurrence: US)
  Receive Date: 20220803
  Receipt Date: 20221208
  Transmission Date: 20230113
  Serious: No
  Sender: FDA-Public Use
  Company Number: US-BRISTOL-MYERS SQUIBB COMPANY-2022-083941

PATIENT
  Age: 47 Year
  Sex: Male

DRUGS (1)
  1. REVLIMID [Suspect]
     Active Substance: LENALIDOMIDE
     Indication: Plasma cell myeloma
     Dosage: DAILY FOR 14 DAYS?LRD :07-DEC-2022 FREQ: DAILY
     Route: 048
     Dates: start: 20220708

REACTIONS (7)
  - Eye swelling [Unknown]
  - Dry skin [Unknown]
  - Skin discolouration [Unknown]
  - Diarrhoea [Unknown]
  - Eyelid irritation [Unknown]
  - Skin exfoliation [Unknown]
  - Piloerection [Unknown]

NARRATIVE: CASE EVENT DATE: 20220726
